FAERS Safety Report 5699340-8 (Version None)
Quarter: 2008Q2

REPORT INFORMATION
  Report Type: 
  Country: None (occurrence: None)
  Receive Date: 20080404
  Receipt Date: 20080326
  Transmission Date: 20081010
  Serious: Yes (Hospitalization)
  Sender: FDA-Public Use
  Company Number: 2008-02089

PATIENT
  Age: 61 Year
  Sex: Female

DRUGS (4)
  1. ALBUTEROL SULFATE + IPRATROPIUM BROMDE (WATSON LABORATORIES)(IPRATROPI [Suspect]
     Indication: CHRONIC OBSTRUCTIVE PULMONARY DISEASE
     Dosage: 2 BREATHING TREATMENTS TOTAL, RESPIRATORY
     Route: 055
     Dates: start: 20080325, end: 20080325
  2. STEROIDS [Concomitant]
  3. BREATHING TREATMENT [Concomitant]
  4. ANTIBIOTICS [Concomitant]

REACTIONS (3)
  - ACUTE MYOCARDIAL INFARCTION [None]
  - CARDIAC FAILURE [None]
  - TACHYCARDIA [None]
